FAERS Safety Report 8129727-5 (Version None)
Quarter: 2011Q4

REPORT INFORMATION
  Report Type: 
  Country: None (occurrence: None)
  Receive Date: 20111227
  Receipt Date: 20111117
  Transmission Date: 20120403
  Serious: No
  Sender: FDA-Public Use
  Company Number: PHEH2011US009655

PATIENT
  Age: 47 Year
  Sex: Female

DRUGS (2)
  1. SYNTHROID (LEVOTHYROXINE SODIUM), 0.75 MG [Concomitant]
  2. GILENYA [Suspect]
     Dosage: 0.5 MG, QD, ORAL
     Route: 048
     Dates: start: 20110101

REACTIONS (3)
  - PHOTOPHOBIA [None]
  - WEIGHT DECREASED [None]
  - ALOPECIA [None]
